FAERS Safety Report 13113417 (Version 2)
Quarter: 2017Q1

REPORT INFORMATION
  Report Type: Spontaneous
  Country: HR (occurrence: HR)
  Receive Date: 20170113
  Receipt Date: 20170123
  Transmission Date: 20170428
  Serious: Yes (Hospitalization, Other)
  Sender: FDA-Public Use
  Company Number: HR-PFIZER INC-2017008927

PATIENT
  Age: 44 Year
  Sex: Female
  Weight: 61.5 kg

DRUGS (7)
  1. CISPLATIN. [Suspect]
     Active Substance: CISPLATIN
     Indication: NON-HODGKIN^S LYMPHOMA REFRACTORY
     Dosage: 175 MG, UNK
     Route: 065
     Dates: start: 20161005, end: 20161005
  2. ADCETRIS [Suspect]
     Active Substance: BRENTUXIMAB VEDOTIN
     Indication: NON-HODGKIN^S LYMPHOMA REFRACTORY
     Dosage: 100 MG, ONE DOSE
     Route: 042
     Dates: start: 20161004, end: 20161004
  3. LONQUEX [Concomitant]
     Active Substance: LIPEGFILGRASTIM
     Dosage: 1 UNK, UNK
     Route: 058
     Dates: start: 20161010
  4. CYTOSAR [Suspect]
     Active Substance: CYTARABINE
     Indication: NON-HODGKIN^S LYMPHOMA REFRACTORY
     Dosage: 3.5 G, 2 TIMES
     Route: 065
     Dates: start: 20161007, end: 20161007
  5. DEXAMETHASONE. [Concomitant]
     Active Substance: DEXAMETHASONE
     Dosage: 40 MG
     Route: 042
  6. ALOPURINOL [Concomitant]
     Active Substance: ALLOPURINOL
     Dosage: 300 MG
     Route: 048
  7. ORBENIN [Concomitant]
     Active Substance: CLOXACILLIN SODIUM
     Dosage: 4 G
     Route: 042

REACTIONS (5)
  - Pancytopenia [Unknown]
  - Hypokalaemia [Recovered/Resolved]
  - Product use issue [Unknown]
  - Pyrexia [Unknown]
  - Febrile neutropenia [Recovered/Resolved]

NARRATIVE: CASE EVENT DATE: 20161017
